FAERS Safety Report 19356892 (Version 1)
Quarter: 2021Q2

REPORT INFORMATION
  Report Type: Report from Study
  Country: US (occurrence: US)
  Receive Date: 20210602
  Receipt Date: 20210602
  Transmission Date: 20210717
  Serious: Yes (Other)
  Sender: FDA-Public Use
  Company Number: US-GILEAD-2021-0533404

PATIENT
  Age: 23 Year
  Sex: Male

DRUGS (30)
  1. METOCLOPRAMIDE. [Concomitant]
     Active Substance: METOCLOPRAMIDE
  2. CETIRIZINE [Concomitant]
     Active Substance: CETIRIZINE HYDROCHLORIDE
  3. LEVETIRACETAM. [Concomitant]
     Active Substance: LEVETIRACETAM
  4. VIMPAT [Concomitant]
     Active Substance: LACOSAMIDE
  5. FERROUS SULFATE. [Concomitant]
     Active Substance: FERROUS SULFATE
  6. LEVALBUTEROL [LEVOSALBUTAMOL] [Concomitant]
     Active Substance: LEVALBUTEROL
  7. LIDOCAINE. [Concomitant]
     Active Substance: LIDOCAINE
  8. PHENOBARBITAL. [Concomitant]
     Active Substance: PHENOBARBITAL
  9. WAL?TUSSIN [Concomitant]
     Active Substance: DEXTROMETHORPHAN HYDROBROMIDE
  10. FLUCONAZOLE. [Concomitant]
     Active Substance: FLUCONAZOLE
  11. HYOSCYAMINE. [Concomitant]
     Active Substance: HYOSCYAMINE
  12. NEOMYCIN / POLY B / DEXAMETHASONE [Concomitant]
     Active Substance: DEXAMETHASONE\NEOMYCIN SULFATE\POLYMYXIN B SULFATE
  13. NEXIUM I.V. [Concomitant]
     Active Substance: ESOMEPRAZOLE SODIUM
  14. TOBRAMYCIN. [Concomitant]
     Active Substance: TOBRAMYCIN
  15. VITAMIN B12 [VITAMIN B12 NOS] [Concomitant]
     Active Substance: CYANOCOBALAMIN
  16. AMOXICLAV [Concomitant]
     Active Substance: AMOXICILLIN\CLAVULANATE POTASSIUM
  17. IPRATROPIUM [Concomitant]
     Active Substance: IPRATROPIUM
  18. LASIX [Concomitant]
     Active Substance: FUROSEMIDE
  19. MELATONIN [Concomitant]
     Active Substance: MELATONIN
  20. NYSTATIN. [Concomitant]
     Active Substance: NYSTATIN
  21. ALBUTEROL [SALBUTAMOL] [Concomitant]
     Active Substance: ALBUTEROL
  22. AMPICILLIN [Concomitant]
     Active Substance: AMPICILLIN
  23. LORAZEPAM. [Concomitant]
     Active Substance: LORAZEPAM
  24. NASACORT [Concomitant]
     Active Substance: TRIAMCINOLONE ACETONIDE
  25. NYSTOP [Concomitant]
     Active Substance: NYSTATIN
  26. AZTREONAM LYSINE [Suspect]
     Active Substance: AZTREONAM LYSINE
     Indication: CHRONIC RESPIRATORY FAILURE
     Dosage: 75 MG, TID, 28 DAYS AND ALTERNATE WITH KITABIS
     Route: 055
     Dates: start: 20181026
  27. FUROSEMIDE. [Concomitant]
     Active Substance: FUROSEMIDE
  28. GLYCOPYRROLATE. [Concomitant]
     Active Substance: GLYCOPYRROLATE
  29. MONTELUKAST [Concomitant]
     Active Substance: MONTELUKAST SODIUM
  30. SSD [Concomitant]
     Active Substance: SILVER SULFADIAZINE

REACTIONS (2)
  - Gastrointestinal tube insertion [Unknown]
  - Off label use [Not Recovered/Not Resolved]

NARRATIVE: CASE EVENT DATE: 20210526
